FAERS Safety Report 16795994 (Version 2)
Quarter: 2019Q3

REPORT INFORMATION
  Report Type: Spontaneous
  Country: IT (occurrence: IT)
  Receive Date: 20190911
  Receipt Date: 20190924
  Transmission Date: 20191005
  Serious: Yes (Life-Threatening, Hospitalization, Other)
  Sender: FDA-Public Use
  Company Number: IT-MYLANLABS-2019M1085243

PATIENT
  Age: 67 Year
  Sex: Female

DRUGS (1)
  1. DICLOFENAC [Suspect]
     Active Substance: DICLOFENAC
     Indication: ARTHRALGIA
     Dosage: UNK
     Route: 065

REACTIONS (13)
  - Necrosis [Recovered/Resolved]
  - Asthenia [Recovered/Resolved]
  - Necrotising fasciitis [Recovered/Resolved]
  - Blepharitis [Recovered/Resolved]
  - Angioedema [Recovered/Resolved]
  - Scar [Recovered/Resolved]
  - Drug abuse [Unknown]
  - Condition aggravated [Recovered/Resolved]
  - Ectropion [Recovered/Resolved]
  - Photosensitivity reaction [Recovered/Resolved]
  - Self-medication [Unknown]
  - Body temperature increased [Recovered/Resolved]
  - Intentional product misuse [Unknown]
